FAERS Safety Report 7191436-7 (Version None)
Quarter: 2010Q4

REPORT INFORMATION
  Report Type: 
  Country: None (occurrence: None)
  Receive Date: 20101223
  Receipt Date: 20101210
  Transmission Date: 20110411
  Serious: Yes (Disabling, Other)
  Sender: FDA-Public Use
  Company Number: US-ROCHE-727552

PATIENT
  Sex: Male
  Weight: 77.1 kg

DRUGS (5)
  1. ACCUTANE [Suspect]
     Indication: ACNE
     Route: 048
     Dates: start: 19900101
  2. ACCUTANE [Suspect]
     Route: 048
     Dates: start: 20000101
  3. ACCUTANE [Suspect]
     Route: 048
     Dates: start: 20041124, end: 20041210
  4. ACCUTANE [Suspect]
     Route: 048
     Dates: start: 20050128, end: 20050525
  5. CLARAVIS [Suspect]
     Route: 048
     Dates: start: 20041118

REACTIONS (17)
  - ADJUSTMENT DISORDER [None]
  - ALANINE AMINOTRANSFERASE INCREASED [None]
  - ASPARTATE AMINOTRANSFERASE INCREASED [None]
  - BLOOD CHOLESTEROL INCREASED [None]
  - BLOOD TRIGLYCERIDES INCREASED [None]
  - COLITIS ULCERATIVE [None]
  - DEPRESSION [None]
  - DRY EYE [None]
  - EPISTAXIS [None]
  - GASTROINTESTINAL INJURY [None]
  - GENERALISED ANXIETY DISORDER [None]
  - HAEMORRHOIDS [None]
  - INFLAMMATORY BOWEL DISEASE [None]
  - IRRITABLE BOWEL SYNDROME [None]
  - LOW DENSITY LIPOPROTEIN INCREASED [None]
  - PRURITUS [None]
  - XEROSIS [None]
